FAERS Safety Report 15320004 (Version 2)
Quarter: 2018Q4

REPORT INFORMATION
  Report Type: Report from Study
  Country: DE (occurrence: DE)
  Receive Date: 20180827
  Receipt Date: 20181010
  Transmission Date: 20190204
  Serious: Yes (Death)
  Sender: FDA-Public Use
  Company Number: DE-ROCHE-2168102

PATIENT
  Age: 77 Year
  Sex: Female
  Weight: 80 kg

DRUGS (3)
  1. HERCEPTIN [Suspect]
     Active Substance: TRASTUZUMAB
     Route: 065
     Dates: start: 20110509, end: 20110509
  2. HERCEPTIN [Suspect]
     Active Substance: TRASTUZUMAB
     Indication: BREAST CANCER
     Route: 065
     Dates: start: 20110516, end: 20110516
  3. PACLITAXEL. [Concomitant]
     Active Substance: PACLITAXEL
     Indication: BREAST CANCER
     Route: 065
     Dates: start: 20110509, end: 20110905

REACTIONS (1)
  - Death [Fatal]

NARRATIVE: CASE EVENT DATE: 20120111
